FAERS Safety Report 5235626-9 (Version None)
Quarter: 2007Q1

REPORT INFORMATION
  Report Type: 
  Country: None (occurrence: None)
  Receive Date: 20061208
  Receipt Date: 20060501
  Transmission Date: 20070707
  Serious: Yes (Other)
  Sender: FDA-Public Use
  Company Number: 2006UW08079

PATIENT
  Age: 70 Year
  Sex: Female
  Weight: 65.77 kg

DRUGS (5)
  1. CRESTOR [Suspect]
     Indication: BLOOD CHOLESTEROL INCREASED
     Dosage: 10 MG PO
     Route: 048
  2. XANAX [Concomitant]
  3. SINEMET [Concomitant]
  4. PRINACTIZIDE [Concomitant]
  5. TENORMIN [Concomitant]

REACTIONS (1)
  - HOT FLUSH [None]
